FAERS Safety Report 6544436-1 (Version None)
Quarter: 2010Q1

REPORT INFORMATION
  Report Type: 
  Country: None (occurrence: None)
  Receive Date: 20100120
  Receipt Date: 20100120
  Transmission Date: 20100710
  Serious: Yes (Other)
  Sender: FDA-Public Use
  Company Number: None

PATIENT
  Age: 59 Year
  Sex: Female
  Weight: 92.0802 kg

DRUGS (2)
  1. TYLENOL (CAPLET) [Suspect]
     Indication: KNEE ARTHROPLASTY
     Dosage: 2 CAPSULES EVERY 6 HR. PO
     Route: 048
     Dates: start: 20091010, end: 20091123
  2. TYLENOL (CAPLET) [Suspect]
     Indication: PAIN MANAGEMENT
     Dosage: 2 CAPSULES EVERY 6 HR. PO
     Route: 048
     Dates: start: 20091010, end: 20091123

REACTIONS (4)
  - DIARRHOEA [None]
  - HYPOPHAGIA [None]
  - NAUSEA [None]
  - WEIGHT DECREASED [None]
